FAERS Safety Report 6361213-5 (Version None)
Quarter: 2009Q3

REPORT INFORMATION
  Report Type: 
  Country: None (occurrence: None)
  Receive Date: 20090918
  Receipt Date: 20090907
  Transmission Date: 20100115
  Serious: Yes (Death)
  Sender: FDA-Public Use
  Company Number: IT-PFIZER INC-2009264863

PATIENT

DRUGS (4)
  1. CAMPTOSAR [Suspect]
     Indication: OESOPHAGEAL ADENOCARCINOMA
     Dosage: 180 MG/M2, EVERY 2 WEEKS
     Route: 042
     Dates: start: 20090720, end: 20090817
  2. FLUOROURACIL [Suspect]
     Indication: OESOPHAGEAL ADENOCARCINOMA
     Dosage: 400 MG/M2, EVERY 2 WEEKS
     Route: 040
     Dates: start: 20090720, end: 20090818
  3. FLUOROURACIL [Suspect]
     Dosage: 600 MG/M2, EVERY TWO WEEKS
     Route: 041
     Dates: start: 20090720, end: 20090818
  4. LEUCOVORIN CALCIUM [Suspect]
     Indication: OESOPHAGEAL ADENOCARCINOMA
     Dosage: 100 MG/M2, EVERY 2 WEEKS
     Route: 042
     Dates: start: 20090720, end: 20090818

REACTIONS (1)
  - DEATH [None]
